FAERS Safety Report 19997764 (Version 1)
Quarter: 2021Q4

REPORT INFORMATION
  Report Type: Spontaneous
  Country: NZ (occurrence: NZ)
  Receive Date: 20211026
  Receipt Date: 20211026
  Transmission Date: 20220303
  Serious: Yes (Death, Hospitalization, Other)
  Sender: FDA-Public Use
  Company Number: NZ-NOVARTISPH-NVSC2021NZ244031

PATIENT
  Age: 70 Year
  Sex: Male

DRUGS (1)
  1. ENTRESTO [Suspect]
     Active Substance: SACUBITRIL\VALSARTAN
     Indication: Cardiac failure
     Dosage: UNK UNK, UNKNOWN
     Route: 065

REACTIONS (1)
  - Ventricular tachycardia [Fatal]
